FAERS Safety Report 8539034-4 (Version None)
Quarter: 2012Q3

REPORT INFORMATION
  Report Type: 
  Country: None (occurrence: None)
  Receive Date: 20120726
  Receipt Date: 20120723
  Transmission Date: 20120928
  Serious: Yes (Death, Other)
  Sender: FDA-Public Use
  Company Number: PHHY2012EC064176

PATIENT
  Sex: Female

DRUGS (1)
  1. EXELON [Suspect]
     Dosage: 9.5 MG, ONE PATCH DAILY
     Route: 062
     Dates: start: 20091212, end: 20111201

REACTIONS (2)
  - CARDIOMEGALY [None]
  - CARDIO-RESPIRATORY ARREST [None]
